FAERS Safety Report 14996845 (Version 1)
Quarter: 2018Q2

REPORT INFORMATION
  Report Type: Spontaneous
  Country: FR (occurrence: FR)
  Receive Date: 20180611
  Receipt Date: 20180611
  Transmission Date: 20180711
  Serious: Yes (Hospitalization, Other)
  Sender: FDA-Public Use
  Company Number: FR-PFIZER INC-2018233011

PATIENT
  Age: 82 Year
  Sex: Female

DRUGS (4)
  1. DALACINE [Suspect]
     Active Substance: CLINDAMYCIN HYDROCHLORIDE
     Indication: DEVICE RELATED INFECTION
     Dosage: 2400 MG, 1X/DAY
     Route: 048
     Dates: start: 200907, end: 200907
  2. BACTRIM [Suspect]
     Active Substance: SULFAMETHOXAZOLE\TRIMETHOPRIM
     Indication: DEVICE RELATED INFECTION
     Dosage: 3 DF, 1X/DAY
     Route: 048
     Dates: start: 200906, end: 200907
  3. PYOSTACINE [Suspect]
     Active Substance: PRISTINAMYCIN
     Indication: DEVICE RELATED INFECTION
     Dosage: 3000 MG, 1X/DAY
     Route: 048
     Dates: start: 200907, end: 200907
  4. RIFADINE [Suspect]
     Active Substance: RIFAMPIN
     Indication: DEVICE RELATED INFECTION
     Dosage: 1800 MG, 1X/DAY
     Route: 048
     Dates: start: 200906, end: 200906

REACTIONS (3)
  - Anaemia [Unknown]
  - Cholestasis [Recovering/Resolving]
  - Vomiting [Recovered/Resolved]

NARRATIVE: CASE EVENT DATE: 200906
